FAERS Safety Report 19505551 (Version 3)
Quarter: 2021Q4

REPORT INFORMATION
  Report Type: Other
  Country: CA (occurrence: CA)
  Receive Date: 20210708
  Receipt Date: 20211116
  Transmission Date: 20220303
  Serious: Yes (Hospitalization, Disabling, Other)
  Sender: FDA-Public Use
  Company Number: CA-CELLTRION INC.-2021CA009001

PATIENT

DRUGS (18)
  1. RITUXIMAB [Suspect]
     Active Substance: RITUXIMAB
     Indication: Granulomatosis with polyangiitis
     Dosage: 715.0 MG, 1 EVERY 1 WEEK
     Route: 042
  2. ACETAMINOPHEN [Concomitant]
     Active Substance: ACETAMINOPHEN
     Indication: Premedication
     Dosage: 650.0 MG, TOTAL
  3. ALENDRONATE SODIUM [Concomitant]
     Active Substance: ALENDRONATE SODIUM
  4. ALPRAZOLAM [Concomitant]
     Active Substance: ALPRAZOLAM
  5. BRIVARACETAM [Concomitant]
     Active Substance: BRIVARACETAM
     Route: 065
  6. CALCIUM [Concomitant]
     Active Substance: CALCIUM
  7. DILANTIN [Concomitant]
     Active Substance: PHENYTOIN
     Dosage: 1.0 DOSAGE FORM
  8. DILANTIN [Concomitant]
     Active Substance: PHENYTOIN
     Dosage: 1.0 DOSAGE FORM
  9. DILANTIN [Concomitant]
     Active Substance: PHENYTOIN
     Dosage: UNK
  10. DIPHENHYDRAMINE [Concomitant]
     Active Substance: DIPHENHYDRAMINE
     Indication: Premedication
     Dosage: 50.0 MG, TOTAL
  11. METHYLPREDNISOLONE SODIUM SUCCINATE [Concomitant]
     Active Substance: METHYLPREDNISOLONE SODIUM SUCCINATE
     Indication: Premedication
     Dosage: 100.0 MG, TOTAL
  12. MYCOPHENOLATE MOFETIL [Concomitant]
     Active Substance: MYCOPHENOLATE MOFETIL
     Dosage: 1.0 DOSAGE FORM
  13. MYCOPHENOLATE MOFETIL [Concomitant]
     Active Substance: MYCOPHENOLATE MOFETIL
     Dosage: UNK
  14. MYCOPHENOLATE MOFETIL [Concomitant]
     Active Substance: MYCOPHENOLATE MOFETIL
     Dosage: 1.0 DOSAGE FORM
  15. PREGABALIN [Concomitant]
     Active Substance: PREGABALIN
     Dosage: 1.0 DOSAGE FORM
     Route: 065
  16. TADALAFIL [Concomitant]
     Active Substance: TADALAFIL
  17. DULOXETINE [Concomitant]
     Active Substance: DULOXETINE
     Dosage: 1.0 DOSAGE FORM
     Route: 065
  18. VITAMIN D [Concomitant]
     Active Substance: VITAMIN D NOS

REACTIONS (11)
  - Bladder disorder [Not Recovered/Not Resolved]
  - Blood pressure fluctuation [Not Recovered/Not Resolved]
  - Urine output increased [Not Recovered/Not Resolved]
  - Quality of life decreased [Not Recovered/Not Resolved]
  - Rectal discharge [Not Recovered/Not Resolved]
  - Contusion [Not Recovered/Not Resolved]
  - Fall [Not Recovered/Not Resolved]
  - Hip fracture [Not Recovered/Not Resolved]
  - Headache [Not Recovered/Not Resolved]
  - Off label use [Not Recovered/Not Resolved]
  - Intentional product use issue [Not Recovered/Not Resolved]
